FAERS Safety Report 5989764-3 (Version None)
Quarter: 2008Q4

REPORT INFORMATION
  Report Type: 
  Country: None (occurrence: None)
  Receive Date: 20081209
  Receipt Date: 20081201
  Transmission Date: 20090506
  Serious: Yes (Hospitalization)
  Sender: FDA-Public Use
  Company Number: DSA_32805_2008

PATIENT
  Age: 85 Year
  Sex: Female

DRUGS (12)
  1. ENALAPRIL MALEATE [Suspect]
     Indication: CARDIAC FAILURE
     Dosage: DF ORAL
     Route: 048
     Dates: start: 20070404, end: 20081024
  2. ACETAMINOPHEN [Suspect]
     Indication: PAIN
     Dosage: DF ORAL
     Route: 048
     Dates: start: 20080529, end: 20081025
  3. ASPIRIN LYSINE (ASPIRIN LYSINE) (NOT SPECIFIED) [Suspect]
     Dosage: 75 MG QD ORAL
     Route: 048
     Dates: start: 20070401, end: 20081024
  4. ALUMINUM HYDROXIDE/MG TRISILICATE [Suspect]
     Dosage: DR ORAL
     Route: 048
     Dates: start: 20070404, end: 20081024
  5. POLYETHYLENE GLYCOL 3350/JC1/NAHCO3/NAC1 [Suspect]
     Indication: DRUG USE FOR UNKNOWN INDICATION
     Dosage: DF ORAL
     Route: 048
     Dates: start: 20070404, end: 20081024
  6. TRIMEPRAZINE TARTREATE (TRIMEPRAZINE TARTRATE) [Suspect]
     Indication: DRUG USE FOR UNKNOWN INDICATION
     Dosage: 3 GTT QD ORAL
     Route: 048
     Dates: start: 20070404, end: 20081024
  7. MIANSERINE HCL PCH (MIEANSERIN HC1) (NOT SPECIFIED) [Suspect]
     Indication: DEPRESSION
     Dosage: 30 MG QD ORAL
     Route: 048
     Dates: start: 20070503, end: 20081024
  8. CALCIUM CARBONATE (CALCIUM CARBONATE) [Suspect]
     Indication: OSTEOPOROSIS
     Dosage: 1 DF QD ORAL
     Route: 048
     Dates: start: 20070404, end: 20081024
  9. ERGOCALCIFEROL [Suspect]
     Indication: DRUG USE FOR UNKNOWN INDICATION
     Dosage: 5 GTT QD ORAL
     Route: 048
     Dates: start: 20070404, end: 20081024
  10. CARVEDILOL [Suspect]
     Indication: CARDIAC FAILURE
     Dosage: 6.25 MG QD ORAL
     Route: 048
     Dates: start: 20070404, end: 20081024
  11. SMECTITE + VANILLA [Suspect]
     Indication: DRUG USE FOR UNKNOWN INDICATION
     Dosage: DF ORAL
     Route: 048
     Dates: start: 20080604, end: 20081024
  12. FUROSEMIDE [Suspect]
     Indication: HYPERTENSION
     Dosage: 20 MG QD ORAL
     Route: 048
     Dates: start: 20070404, end: 20071024

REACTIONS (10)
  - DEPRESSION [None]
  - FACIAL PALSY [None]
  - HEMIPLEGIA [None]
  - HYPERKALAEMIA [None]
  - HYPERTENSION [None]
  - ISCHAEMIC STROKE [None]
  - MALAISE [None]
  - OSTEOPOROSIS [None]
  - PARALYSIS [None]
  - RENAL FAILURE ACUTE [None]
